FAERS Safety Report 15657321 (Version 3)
Quarter: 2018Q4

REPORT INFORMATION
  Report Type: Spontaneous
  Country: JP (occurrence: JP)
  Receive Date: 20181126
  Receipt Date: 20181212
  Transmission Date: 20190205
  Serious: Yes (Hospitalization)
  Sender: FDA-Public Use
  Company Number: JP-JNJFOC-20181125686

PATIENT
  Age: 64 Year
  Sex: Female
  Weight: 58 kg

DRUGS (17)
  1. URSO [Suspect]
     Active Substance: URSODIOL
     Indication: CHOLESTASIS
     Route: 048
  2. PREDNISOLONE. [Concomitant]
     Active Substance: PREDNISOLONE
     Route: 065
     Dates: start: 201806
  3. LOXOPROFEN [Concomitant]
     Active Substance: LOXOPROFEN
     Route: 048
  4. REMICADE [Suspect]
     Active Substance: INFLIXIMAB
     Indication: RHEUMATOID ARTHRITIS
     Route: 042
     Dates: start: 20180712, end: 20180712
  5. AMLODIPINE [Concomitant]
     Active Substance: AMLODIPINE BESYLATE
     Route: 048
  6. CILOSTAZOL. [Concomitant]
     Active Substance: CILOSTAZOL
     Route: 048
  7. VALSARTAN. [Concomitant]
     Active Substance: VALSARTAN
     Route: 048
  8. EDIROL [Concomitant]
     Active Substance: ELDECALCITOL
     Route: 048
  9. THYRADIN S [Concomitant]
     Active Substance: LEVOTHYROXINE SODIUM
     Route: 048
     Dates: start: 20180713
  10. LIMAPROST ALFADEX [Concomitant]
     Active Substance: LIMAPROST
     Route: 048
  11. ADALIMUMAB [Concomitant]
     Active Substance: ADALIMUMAB
     Route: 065
     Dates: start: 201702
  12. METHOTREXATE. [Suspect]
     Active Substance: METHOTREXATE
     Indication: RHEUMATOID ARTHRITIS
     Route: 048
     Dates: start: 200807, end: 201808
  13. METHOTREXATE. [Suspect]
     Active Substance: METHOTREXATE
     Indication: RHEUMATOID ARTHRITIS
     Route: 048
     Dates: end: 20180810
  14. FOLIAMIN [Concomitant]
     Active Substance: FOLIC ACID
     Route: 048
     Dates: end: 20180810
  15. TOCOPHEROL [Concomitant]
     Active Substance: TOCOPHEROL
     Route: 048
  16. REMICADE [Suspect]
     Active Substance: INFLIXIMAB
     Indication: RHEUMATOID ARTHRITIS
     Route: 042
     Dates: start: 20180627
  17. ETANERCEPT [Concomitant]
     Active Substance: ETANERCEPT
     Route: 065
     Dates: start: 201706

REACTIONS (1)
  - Pneumocystis jirovecii pneumonia [Recovering/Resolving]

NARRATIVE: CASE EVENT DATE: 20180810
